FAERS Safety Report 4884673-5 (Version None)
Quarter: 2005Q4

REPORT INFORMATION
  Report Type: 
  Country: None (occurrence: None)
  Receive Date: 20051201
  Receipt Date: 20050921
  Transmission Date: 20060501
  Serious: No
  Sender: FDA-Public Use
  Company Number: 2005PV002379

PATIENT
  Sex: Female

DRUGS (3)
  1. BYETTA [Suspect]
     Indication: DIABETES MELLITUS
     Dosage: 10 MCG;BID;SC
     Route: 058
     Dates: start: 20050919
  2. HALDANE [Concomitant]
  3. SEROQUEL [Concomitant]

REACTIONS (1)
  - INSOMNIA [None]
